FAERS Safety Report 8696269 (Version 3)
Quarter: 2012Q4

REPORT INFORMATION
  Report Type: 
  Country: BR (occurrence: BR)
  Receive Date: 20120801
  Receipt Date: 20120913
  Transmission Date: 20130627
  Serious: Yes (Other)
  Sender: FDA-Public Use
  Company Number: BR-GE HEALTHCARE MEDICAL DIAGNOSTICS-OMPQ-PR-1207S-0827

PATIENT
  Age: 92 Year
  Sex: Male

DRUGS (5)
  1. OMNIPAQUE [Suspect]
     Indication: DYSPNOEA
     Route: 042
     Dates: start: 20120702, end: 20120702
  2. OMNIPAQUE [Suspect]
     Indication: DIAGNOSTIC PROCEDURE
  3. FUROSEMIDE [Concomitant]
  4. CEFTRIAXONE [Concomitant]
  5. SPIRONOLACTONE [Concomitant]

REACTIONS (5)
  - Pyrexia [Recovered/Resolved]
  - Chills [Recovered/Resolved]
  - Nausea [Recovered/Resolved]
  - Vomiting [Recovered/Resolved]
  - Diarrhoea [Recovered/Resolved]
